FAERS Safety Report 8285815-4 (Version None)
Quarter: 2012Q2

REPORT INFORMATION
  Report Type: 
  Country: None (occurrence: None)
  Receive Date: 20120413
  Receipt Date: 20120406
  Transmission Date: 20120825
  Serious: Yes (Hospitalization, Disabling, Other)
  Sender: FDA-Public Use
  Company Number: US-ELI_LILLY_AND_COMPANY-US201108003939

PATIENT
  Age: 93 Year
  Sex: Female

DRUGS (14)
  1. METOPROLOL TARTRATE [Concomitant]
     Dosage: 100 MG, BID
  2. AMIODARONE HCL [Concomitant]
     Dosage: 200 MG, QD
  3. NAMENDA [Concomitant]
     Dosage: 10 MG, BID
  4. SODIUM CHLORIDE [Concomitant]
  5. VITAMIN TAB [Concomitant]
  6. CYMBALTA [Concomitant]
     Indication: DEPRESSION
     Dosage: 30 MG, BID
  7. FORTEO [Suspect]
     Indication: OSTEOPOROSIS
     Dosage: 20 UG, QD
     Route: 065
  8. FISH OIL [Concomitant]
  9. LUTEIN [Concomitant]
  10. FERROUS SULFATE TAB [Concomitant]
  11. LASIX [Concomitant]
     Dosage: UNK
  12. CALCIUM CARBONATE [Concomitant]
  13. ARICEPT [Concomitant]
     Dosage: 10 MG, UNK
  14. ALBUTEROL [Concomitant]

REACTIONS (12)
  - GAIT DISTURBANCE [None]
  - PULMONARY OEDEMA [None]
  - FEELING ABNORMAL [None]
  - FALL [None]
  - CARDIAC FAILURE CONGESTIVE [None]
  - LUNG INFECTION [None]
  - DEMENTIA ALZHEIMER'S TYPE [None]
  - AGEUSIA [None]
  - PNEUMONIA [None]
  - CARDIAC DISORDER [None]
  - ASTHENIA [None]
  - CONTUSION [None]
